FAERS Safety Report 4545073-0 (Version None)
Quarter: 2005Q1

REPORT INFORMATION
  Report Type: 
  Country: None (occurrence: None)
  Receive Date: 20050103
  Receipt Date: 20041220
  Transmission Date: 20050727
  Serious: Yes (Other)
  Sender: FDA-Public Use
  Company Number: 2004104942

PATIENT
  Age: 64 Year
  Sex: Male
  Weight: 54.5 kg

DRUGS (7)
  1. SULPERAZON (SULBACTAM, CEFOPERAZONE) [Suspect]
     Indication: POSTOPERATIVE INFECTION
     Dosage: 1 GRAM (1 D), INTRAVENOUS
     Route: 042
     Dates: start: 20041126, end: 20041126
  2. CEFAZOLIN SODIUM [Concomitant]
  3. GLIMEPIRIDE [Concomitant]
  4. URSODEOXYCHOLIC ACID (URSODEOXYCHOLIC ACID) [Concomitant]
  5. PIOGLITAZONE HCL [Concomitant]
  6. RABEPRAZOLE SODIUM [Concomitant]
  7. PROPOFOL [Concomitant]

REACTIONS (1)
  - ANAPHYLACTIC SHOCK [None]
